FAERS Safety Report 16670110 (Version 1)
Quarter: 2019Q3

REPORT INFORMATION
  Report Type: Spontaneous
  Country: US (occurrence: US)
  Receive Date: 20190805
  Receipt Date: 20190805
  Transmission Date: 20191004
  Serious: No
  Sender: FDA-Public Use
  Company Number: US-ROCHE-2204443

PATIENT
  Sex: Female

DRUGS (6)
  1. HERCEPTIN [Suspect]
     Active Substance: TRASTUZUMAB
     Dosage: 2ND AND SUBSEQUENT DOSES; AT LEAST GOT 2ND DOSE ;ONGOING: UNKNOWN
     Route: 042
  2. DOCETAXEL. [Concomitant]
     Active Substance: DOCETAXEL
  3. PERJETA [Suspect]
     Active Substance: PERTUZUMAB
     Indication: BREAST CANCER
     Dosage: 1ST DOSE, ONGOING: NO
     Route: 042
  4. PERJETA [Suspect]
     Active Substance: PERTUZUMAB
     Dosage: 2ND AND SUBSEQUENT DOSES; AT LEAST GOT 2ND DOSE, ONGOING: UNKNOWN
     Route: 042
  5. CARBOPLATIN. [Concomitant]
     Active Substance: CARBOPLATIN
  6. HERCEPTIN [Suspect]
     Active Substance: TRASTUZUMAB
     Indication: BREAST CANCER
     Dosage: 1ST DOSE ;ONGOING: NO
     Route: 042

REACTIONS (1)
  - Rash [Unknown]
